FAERS Safety Report 5722014-1 (Version None)
Quarter: 2008Q2

REPORT INFORMATION
  Report Type: 
  Country: None (occurrence: None)
  Receive Date: 20080429
  Receipt Date: 20080418
  Transmission Date: 20081010
  Serious: Yes (Hospitalization)
  Sender: FDA-Public Use
  Company Number: US-PFIZER INC-2008030685

PATIENT
  Sex: Male
  Weight: 90.3 kg

DRUGS (12)
  1. MARAVIROC [Suspect]
     Indication: HIV INFECTION
     Route: 048
  2. BACTRIM [Concomitant]
     Route: 048
  3. VICODIN [Concomitant]
     Route: 048
     Dates: start: 20071228
  4. PHENYTOIN SODIUM [Concomitant]
     Route: 048
     Dates: start: 20071228
  5. ANDROGEL [Concomitant]
     Route: 061
     Dates: start: 20071228
  6. FLUOXETINE HYDROCHLORIDE [Concomitant]
     Route: 048
     Dates: start: 20080111
  7. LOMOTIL [Concomitant]
     Route: 048
     Dates: start: 20080304
  8. VIRAMUNE [Concomitant]
     Route: 048
     Dates: start: 20080314
  9. EPZICOM [Concomitant]
     Route: 048
     Dates: start: 20080314
  10. ISENTRESS [Concomitant]
     Route: 048
     Dates: start: 20080314
  11. LEVAQUIN [Concomitant]
     Route: 048
     Dates: start: 20080320
  12. NICOTINE [Concomitant]
     Route: 062
     Dates: start: 20080404

REACTIONS (1)
  - MYOCARDIAL INFARCTION [None]
